FAERS Safety Report 11123399 (Version 1)
Quarter: 2015Q2

REPORT INFORMATION
  Report Type: Spontaneous
  Country: US (occurrence: US)
  Receive Date: 20150519
  Receipt Date: 20150519
  Transmission Date: 20150821
  Serious: Yes (Hospitalization, Other)
  Sender: FDA-Public Use
  Company Number: US-JNJFOC-20150510863

PATIENT
  Sex: Female

DRUGS (13)
  1. AMBIEN [Concomitant]
     Active Substance: ZOLPIDEM TARTRATE
  2. CLONOPIN [Concomitant]
     Active Substance: CLONAZEPAM
  3. URSODIOL. [Concomitant]
     Active Substance: URSODIOL
  4. PREMARIN [Concomitant]
     Active Substance: ESTROGENS, CONJUGATED
  5. VITAMIN F [Concomitant]
     Active Substance: OMEGA-3 FATTY ACIDS
  6. BACTRIM [Concomitant]
     Active Substance: SULFAMETHOXAZOLE\TRIMETHOPRIM
  7. ACYCLOVIR. [Concomitant]
     Active Substance: ACYCLOVIR
  8. VACCINIUM MACROCARPON [Concomitant]
  9. OXYCODONE [Concomitant]
     Active Substance: OXYCODONE
  10. PROPRANOLOL [Concomitant]
     Active Substance: PROPRANOLOL\PROPRANOLOL HYDROCHLORIDE
  11. IMBRUVICA [Suspect]
     Active Substance: IBRUTINIB
     Indication: LYMPHOMA
     Route: 048
  12. MAGNESIUM [Concomitant]
     Active Substance: MAGNESIUM
  13. HYDROCODONE BITARTRATE AND ACETAMINOPHEN [Concomitant]
     Active Substance: ACETAMINOPHEN\HYDROCODONE BITARTRATE

REACTIONS (6)
  - Contusion [Not Recovered/Not Resolved]
  - Pneumonia [Unknown]
  - Off label use [Not Recovered/Not Resolved]
  - Pericardial effusion [Unknown]
  - Haemorrhage [Recovering/Resolving]
  - Stomatitis [Not Recovered/Not Resolved]
